FAERS Safety Report 5268675-5 (Version None)
Quarter: 2007Q1

REPORT INFORMATION
  Report Type: 
  Country: None (occurrence: None)
  Receive Date: 20070319
  Receipt Date: 20070306
  Transmission Date: 20070707
  Serious: Yes (Hospitalization)
  Sender: FDA-Public Use
  Company Number: US-JNJFOC-20070301259

PATIENT
  Age: 15 Year
  Sex: Female

DRUGS (4)
  1. INFLIXIMAB [Suspect]
     Indication: COLITIS ULCERATIVE
     Route: 042
  2. SOLU-MEDROL [Concomitant]
     Indication: COLITIS ULCERATIVE
  3. 5-ASA [Concomitant]
     Indication: COLITIS ULCERATIVE
  4. AZATHIOPRINE [Concomitant]
     Indication: COLITIS ULCERATIVE

REACTIONS (1)
  - BUDD-CHIARI SYNDROME [None]
